FAERS Safety Report 20413839 (Version 3)
Quarter: 2025Q1

REPORT INFORMATION
  Report Type: Report from Study
  Country: US (occurrence: US)
  Receive Date: 20220201
  Receipt Date: 20250307
  Transmission Date: 20250408
  Serious: Yes (Other)
  Sender: ALEXION PHARMACEUTICALS
  Company Number: US-ALXN-A202111441

PATIENT

DRUGS (2)
  1. SOLIRIS [Suspect]
     Active Substance: ECULIZUMAB
     Indication: Atypical haemolytic uraemic syndrome
  2. ULTOMIRIS [Suspect]
     Active Substance: RAVULIZUMAB-CWVZ
     Indication: Atypical haemolytic uraemic syndrome
     Route: 065

REACTIONS (8)
  - Generalised tonic-clonic seizure [Unknown]
  - Exposure to SARS-CoV-2 [Recovered/Resolved]
  - Tremor [Unknown]
  - COVID-19 [Recovering/Resolving]
  - Cough [Unknown]
  - Head discomfort [Unknown]
  - Dizziness [Unknown]
  - Fatigue [Unknown]
